FAERS Safety Report 6567477-7 (Version None)
Quarter: 2010Q1

REPORT INFORMATION
  Report Type: 
  Country: None (occurrence: None)
  Receive Date: 20100202
  Receipt Date: 20100120
  Transmission Date: 20100710
  Serious: Yes (Other)
  Sender: FDA-Public Use
  Company Number: ES-ELI_LILLY_AND_COMPANY-ES201001004187

PATIENT
  Age: 60 Year
  Sex: Female
  Weight: 119.5 kg

DRUGS (9)
  1. BYETTA [Suspect]
     Indication: TYPE 2 DIABETES MELLITUS
     Dosage: 5 UG, UNK
     Route: 058
     Dates: start: 20090922
  2. BYETTA [Suspect]
     Dosage: 10 UG, UNK
     Route: 058
  3. BYETTA [Suspect]
     Dosage: 5 UG, UNK
     Route: 058
     Dates: end: 20100118
  4. METFORMIN HCL [Concomitant]
     Indication: TYPE 2 DIABETES MELLITUS
     Dates: end: 20100118
  5. UNI DIAMICRON [Concomitant]
     Indication: TYPE 2 DIABETES MELLITUS
     Dosage: UNK, 2/D
  6. CARDYL [Concomitant]
     Dosage: 80 MG, DAILY (1/D)
  7. TORSEMIDE [Concomitant]
     Dosage: 5 MG, DAILY (1/D)
  8. PRINIVIL [Concomitant]
     Dosage: 1 D/F, DAILY (1/D)
  9. IDAPTAN [Concomitant]
     Dosage: 1 D/F, EVERY 8 HRS

REACTIONS (1)
  - RENAL FAILURE [None]
